FAERS Safety Report 12704905 (Version 2)
Quarter: 2016Q4

REPORT INFORMATION
  Report Type: Spontaneous
  Country: BR (occurrence: BR)
  Receive Date: 20160831
  Receipt Date: 20161102
  Transmission Date: 20170207
  Serious: Yes (Other)
  Sender: FDA-Public Use
  Company Number: BR-PFIZER INC-2016404008

PATIENT
  Age: 80 Year
  Sex: Male
  Weight: 78 kg

DRUGS (11)
  1. SYNTHROID [Concomitant]
     Active Substance: LEVOTHYROXINE SODIUM
     Indication: HYPOTHYROIDISM
     Dosage: 1 DF, DAILY
     Route: 048
  2. AAS PROTECT [Concomitant]
     Active Substance: ASPIRIN
     Indication: CARDIOVASCULAR DISORDER
     Dosage: 1 DF, DAILY
     Route: 048
     Dates: start: 2001
  3. LIPITOR [Suspect]
     Active Substance: ATORVASTATIN CALCIUM
     Indication: BLOOD TRIGLYCERIDES ABNORMAL
     Dosage: 10MG DAILY
  4. SYNTHROID [Concomitant]
     Active Substance: LEVOTHYROXINE SODIUM
     Indication: THYROID DISORDER
  5. VALIUM [Concomitant]
     Active Substance: DIAZEPAM
     Indication: SEDATIVE THERAPY
     Dosage: 1 DF, DAILY
     Route: 048
     Dates: start: 1996
  6. TRAVATAN [Concomitant]
     Active Substance: TRAVOPROST
  7. VYTORIN [Concomitant]
     Active Substance: EZETIMIBE\SIMVASTATIN
     Indication: BLOOD CHOLESTEROL ABNORMAL
  8. LIPITOR [Suspect]
     Active Substance: ATORVASTATIN CALCIUM
     Indication: BLOOD CHOLESTEROL ABNORMAL
     Dosage: 20 MG, DAILY
     Route: 048
  9. LABIRIN [Concomitant]
     Active Substance: BETAHISTINE
     Indication: LABYRINTHITIS
     Dosage: 1 DF, DAILY
     Route: 048
     Dates: start: 201605
  10. VYTORIN [Concomitant]
     Active Substance: EZETIMIBE\SIMVASTATIN
     Indication: BLOOD TRIGLYCERIDES ABNORMAL
     Dosage: 1 DF, ALTERNATE DAY
     Route: 048
  11. CANDESARTAN CILEXETIL. [Concomitant]
     Active Substance: CANDESARTAN CILEXETIL
     Indication: BLOOD PRESSURE INCREASED
     Dosage: 1 TABLET, DAILY
     Route: 048
     Dates: start: 201502

REACTIONS (2)
  - Cataract [Recovered/Resolved]
  - Glaucoma [Unknown]

NARRATIVE: CASE EVENT DATE: 2016
